FAERS Safety Report 5158500-5 (Version None)
Quarter: 2006Q4

REPORT INFORMATION
  Report Type: 
  Country: None (occurrence: None)
  Receive Date: 20061128
  Receipt Date: 20061123
  Transmission Date: 20070319
  Serious: Yes (Death)
  Sender: FDA-Public Use
  Company Number: 2006AP05538

PATIENT

DRUGS (2)
  1. NAROPIN [Suspect]
  2. NARCOTICS [Concomitant]

REACTIONS (1)
  - DEATH [None]
